FAERS Safety Report 19501112 (Version 4)
Quarter: 2021Q4

REPORT INFORMATION
  Report Type: Spontaneous
  Country: FR (occurrence: FR)
  Receive Date: 20210707
  Receipt Date: 20211130
  Transmission Date: 20220303
  Serious: Yes (Death, Life-Threatening, Hospitalization, Other)
  Sender: FDA-Public Use
  Company Number: FR-GLAXOSMITHKLINE-FR2021GSK137638

PATIENT
  Age: 89 Year
  Sex: Male
  Weight: 82 kg

DRUGS (19)
  1. AMOXICILLIN [Suspect]
     Active Substance: AMOXICILLIN
     Indication: Antibiotic therapy
     Dosage: UNK
     Route: 065
  2. AZITHROMYCIN [Interacting]
     Active Substance: AZITHROMYCIN
     Indication: Antibiotic therapy
     Dosage: UNK
     Route: 065
  3. BISOPROLOL [Suspect]
     Active Substance: BISOPROLOL
     Indication: Cardiac valve disease
     Dosage: UNK
     Route: 065
  4. BISOPROLOL [Suspect]
     Active Substance: BISOPROLOL
     Indication: Atrial fibrillation
  5. ENOXAPARIN [Suspect]
     Active Substance: ENOXAPARIN
     Indication: International normalised ratio fluctuation
     Dosage: 8000 INTERNATIONAL UNIT, ONCE A DAY
     Route: 065
  6. ENOXAPARIN [Suspect]
     Active Substance: ENOXAPARIN
     Indication: Anticoagulant therapy
     Dosage: 200 INTERNATIONAL UNIT/KILOGRAM, ONCE A DAY (100 IU/KG, BID)
     Route: 058
  7. ENOXAPARIN [Suspect]
     Active Substance: ENOXAPARIN
     Dosage: 8000 INTERNATIONAL UNIT, TWO TIMES A DAY
     Route: 058
  8. FUROSEMIDE [Suspect]
     Active Substance: FUROSEMIDE
     Indication: Hypertension
     Dosage: UNK
     Route: 065
  9. RAMIPRIL [Suspect]
     Active Substance: RAMIPRIL
     Indication: Hypertension
     Dosage: UNK
     Route: 065
  10. RAMIPRIL [Suspect]
     Active Substance: RAMIPRIL
     Indication: Cardiac valve disease
  11. VITAMIN K [Suspect]
     Active Substance: PHYTONADIONE
     Indication: Coagulation factor V level increased
     Dosage: 5 MILLIGRAM
     Route: 042
  12. VITAMIN K [Suspect]
     Active Substance: PHYTONADIONE
     Indication: Anticoagulant therapy
  13. SPIRAMYCIN [Suspect]
     Active Substance: SPIRAMYCIN
     Indication: Antibiotic therapy
     Dosage: UNK
     Route: 065
  14. WARFARIN [Interacting]
     Active Substance: WARFARIN
     Indication: Atrial fibrillation
     Dosage: 5 MILLIGRAM, ONCE A DAY
     Route: 065
  15. WARFARIN [Interacting]
     Active Substance: WARFARIN
     Indication: Cardiac valve disease
  16. CEFOTAXIME [Concomitant]
     Active Substance: CEFOTAXIME SODIUM
     Indication: Antibiotic therapy
     Dosage: UNK
     Route: 065
  17. TINZAPARIN [Concomitant]
     Active Substance: TINZAPARIN
     Indication: Coagulopathy
     Dosage: 175 INTERNATIONAL UNIT/KILOGRAM, ONCE A DAY
     Route: 065
  18. DEXAMETHASONE [Concomitant]
     Active Substance: DEXAMETHASONE
     Indication: Product used for unknown indication
     Dosage: 6 MILLIGRAM, ONCE A DAY
     Route: 065
  19. OXYGEN [Concomitant]
     Active Substance: OXYGEN
     Indication: Product used for unknown indication
     Dosage: UNK
     Route: 065

REACTIONS (21)
  - Septic shock [Fatal]
  - International normalised ratio fluctuation [Recovering/Resolving]
  - Drug ineffective [Recovering/Resolving]
  - Pulmonary oedema [Recovering/Resolving]
  - Hypoxia [Recovering/Resolving]
  - Pulmonary congestion [Recovering/Resolving]
  - Pulmonary embolism [Recovering/Resolving]
  - Epistaxis [Recovering/Resolving]
  - Concomitant disease aggravated [Recovering/Resolving]
  - Heart sounds abnormal [Recovering/Resolving]
  - Fibrin D dimer increased [Recovering/Resolving]
  - Coagulation factor V level increased [Recovering/Resolving]
  - Haemoglobin decreased [Recovering/Resolving]
  - Blood fibrinogen increased [Recovering/Resolving]
  - Rales [Recovering/Resolving]
  - Haemorrhage [Recovering/Resolving]
  - Condition aggravated [Recovering/Resolving]
  - Coagulopathy [Unknown]
  - Drug hypersensitivity [Unknown]
  - Drug interaction [Unknown]
  - Overdose [Unknown]
